FAERS Safety Report 5132142-X (Version None)
Quarter: 2006Q4

REPORT INFORMATION
  Report Type: 
  Country: None (occurrence: None)
  Receive Date: 20061017
  Receipt Date: 20061004
  Transmission Date: 20070319
  Serious: No
  Sender: FDA-Public Use
  Company Number: 2006AP000474

PATIENT
  Age: 91 Year
  Sex: Female

DRUGS (1)
  1. CARBIDOPA AND LEVODOPA [Suspect]
     Indication: PARKINSON'S DISEASE
     Dosage: 1 TAB; QID; PO
     Route: 048
     Dates: start: 20050401, end: 20060620

REACTIONS (4)
  - DRUG DISPENSING ERROR [None]
  - NAUSEA [None]
  - TREMOR [None]
  - WRONG DRUG ADMINISTERED [None]
